FAERS Safety Report 26193180 (Version 1)
Quarter: 2025Q4

REPORT INFORMATION
  Report Type: Spontaneous
  Country: US (occurrence: None)
  Receive Date: 20251223
  Receipt Date: 20251223
  Transmission Date: 20260118
  Serious: Yes (Other)
  Sender: FDA-CTU
  Company Number: None

PATIENT
  Age: 66 Year
  Sex: Male
  Weight: 84.6 kg

DRUGS (5)
  1. RILZABRUTINIB [Suspect]
     Active Substance: RILZABRUTINIB
     Indication: Immune thrombocytopenia
     Dosage: FREQUENCY : TWICE A DAY;
     Route: 048
     Dates: start: 20251102
  2. LOSARTAN [Concomitant]
     Active Substance: LOSARTAN
     Dates: start: 20221001
  3. AMLODIPINE [Concomitant]
     Active Substance: AMLODIPINE BESYLATE
     Dates: start: 20231220
  4. FINASTERIDE [Concomitant]
     Active Substance: FINASTERIDE
  5. ATORVASTATIN [Concomitant]
     Active Substance: ATORVASTATIN
     Dates: start: 20221020

REACTIONS (2)
  - Neutrophil count decreased [None]
  - Therapy interrupted [None]

NARRATIVE: CASE EVENT DATE: 20251201
